FAERS Safety Report 15440126 (Version 1)
Quarter: 2018Q3

REPORT INFORMATION
  Report Type: Spontaneous
  Country: US (occurrence: US)
  Receive Date: 20180928
  Receipt Date: 20180928
  Transmission Date: 20181010
  Serious: No
  Sender: FDA-Public Use
  Company Number: US-TEVA-2018-US-957677

PATIENT
  Sex: Female

DRUGS (3)
  1. CLONAZEPAM. [Suspect]
     Active Substance: CLONAZEPAM
     Indication: AUTISM SPECTRUM DISORDER
  2. CLONAZEPAM. [Suspect]
     Active Substance: CLONAZEPAM
     Indication: MUSCLE SPASMS
  3. CLONAZEPAM. [Suspect]
     Active Substance: CLONAZEPAM
     Indication: PANIC DISORDER
     Dates: start: 1985

REACTIONS (7)
  - Abdominal discomfort [Unknown]
  - Panic attack [Unknown]
  - Malaise [Unknown]
  - Psychotic disorder [Unknown]
  - Muscle spasms [Unknown]
  - Hyperhidrosis [Unknown]
  - Muscle disorder [Unknown]

NARRATIVE: CASE EVENT DATE: 201807
